FAERS Safety Report 8145018-0 (Version None)
Quarter: 2012Q1

REPORT INFORMATION
  Report Type: 
  Country: None (occurrence: None)
  Receive Date: 20120217
  Receipt Date: 20120208
  Transmission Date: 20120608
  Serious: Yes (Hospitalization, Other)
  Sender: FDA-Public Use
  Company Number: PHFR2011GB006823

PATIENT
  Sex: Male

DRUGS (2)
  1. DIOVAN [Suspect]
     Indication: MYOCARDIAL INFARCTION
     Dosage: 80 MG,
  2. VALSARTAN [Suspect]
     Dosage: UNK UKN, UNK

REACTIONS (11)
  - SHOCK [None]
  - ARTERIAL INJURY [None]
  - OROPHARYNGEAL PAIN [None]
  - FEELING ABNORMAL [None]
  - MALAISE [None]
  - DYSPEPSIA [None]
  - ASTHENIA [None]
  - PALPITATIONS [None]
  - PAIN IN EXTREMITY [None]
  - MYOCARDIAL INFARCTION [None]
  - DRUG DISPENSING ERROR [None]
